FAERS Safety Report 4951402-6 (Version None)
Quarter: 2006Q1

REPORT INFORMATION
  Report Type: 
  Country: None (occurrence: None)
  Receive Date: 20060317
  Receipt Date: 20060228
  Transmission Date: 20060701
  Serious: Yes (Hospitalization, Other)
  Sender: FDA-Public Use
  Company Number: US200512004050

PATIENT
  Age: 81 Year
  Sex: Female
  Weight: 56.2 kg

DRUGS (8)
  1. FORTEO [Suspect]
     Indication: OSTEOPOROSIS
     Dosage: SEE IMAGE
     Dates: start: 20051219, end: 20060203
  2. FORTEO [Concomitant]
  3. DURAGESIC-100 [Concomitant]
  4. VICODIN [Concomitant]
  5. MIACALCIN [Concomitant]
  6. TRAZODONE HCL [Concomitant]
  7. ALLEGRA [Concomitant]
  8. CALCIUM AND ERGOCALCIFEROL (CALCIUM LACTATE, CALCIUM PHOSPHATE, ERGOCA [Concomitant]

REACTIONS (4)
  - CONDITION AGGRAVATED [None]
  - CONFUSIONAL STATE [None]
  - PAIN [None]
  - PHARMACEUTICAL PRODUCT COMPLAINT [None]
